FAERS Safety Report 6972326-9 (Version None)
Quarter: 2010Q3

REPORT INFORMATION
  Report Type: 
  Country: None (occurrence: None)
  Receive Date: 20100909
  Receipt Date: 20100830
  Transmission Date: 20110219
  Serious: Yes (Hospitalization)
  Sender: FDA-Public Use
  Company Number: PHHY2010NL38613

PATIENT
  Sex: Female

DRUGS (2)
  1. SYNTOCINON [Suspect]
     Indication: LABOUR INDUCTION
     Dosage: UNK
  2. EUTHYROX [Concomitant]
     Indication: HYPOTHYROIDISM
     Dosage: 150 MCG
     Dates: start: 20080201

REACTIONS (1)
  - CAESAREAN SECTION [None]
